FAERS Safety Report 8585457-7 (Version None)
Quarter: 2012Q3

REPORT INFORMATION
  Report Type: 
  Country: None (occurrence: None)
  Receive Date: 20120810
  Receipt Date: 20120802
  Transmission Date: 20120928
  Serious: Yes (Hospitalization, Other)
  Sender: FDA-Public Use
  Company Number: JP-VERTEX PHARMACEUTICALS INC.-AE-2012-011714

PATIENT
  Age: 65 Year
  Sex: Female

DRUGS (13)
  1. RIBAVIRIN [Concomitant]
     Indication: HEPATITIS C
     Route: 048
     Dates: start: 20120424, end: 20120507
  2. RIBAVIRIN [Concomitant]
     Route: 048
     Dates: start: 20120508, end: 20120522
  3. RIBAVIRIN [Concomitant]
     Route: 048
     Dates: start: 20120624
  4. TELAVIC (TELAPREVIR) [Suspect]
     Route: 048
     Dates: start: 20120522, end: 20120618
  5. RIBAVIRIN [Concomitant]
     Dates: start: 20120522, end: 20120618
  6. PEGINTERFERON ALFA-2B [Concomitant]
     Route: 058
     Dates: start: 20120424, end: 20120612
  7. TELAVIC (TELAPREVIR) [Suspect]
     Indication: HEPATITIS C
     Route: 048
     Dates: start: 20120424, end: 20120522
  8. BISOPROLOL FUMARATE [Concomitant]
     Route: 048
     Dates: start: 20120403
  9. CELEBREX [Concomitant]
     Route: 048
     Dates: start: 20120502
  10. MUCOSTA [Concomitant]
     Route: 048
     Dates: start: 20120502
  11. TELAVIC (TELAPREVIR) [Suspect]
     Route: 048
     Dates: start: 20120624
  12. PEGINTERFERON ALFA-2B [Concomitant]
     Route: 058
     Dates: start: 20120624
  13. PEGINTERFERON ALFA-2B [Concomitant]
     Indication: HEPATITIS C
     Route: 058
     Dates: start: 20120424

REACTIONS (2)
  - URINARY TRACT INFECTION [None]
  - WHITE BLOOD CELL COUNT DECREASED [None]
